FAERS Safety Report 5732446-3 (Version None)
Quarter: 2008Q2

REPORT INFORMATION
  Report Type: 
  Country: None (occurrence: None)
  Receive Date: 20080508
  Receipt Date: 20080429
  Transmission Date: 20081010
  Serious: Yes (Hospitalization)
  Sender: FDA-Public Use
  Company Number: US-AMGEN-QUU276947

PATIENT
  Sex: Female

DRUGS (3)
  1. ENBREL [Suspect]
     Indication: RHEUMATOID ARTHRITIS
     Route: 058
     Dates: start: 20080423
  2. METHOTREXATE [Concomitant]
     Dates: start: 20080101
  3. PLAQUENIL [Concomitant]
     Dates: start: 20080101

REACTIONS (3)
  - BACK PAIN [None]
  - CHEST PAIN [None]
  - PARAESTHESIA [None]
